FAERS Safety Report 8388445-9 (Version None)
Quarter: 2012Q2

REPORT INFORMATION
  Report Type: 
  Country: None (occurrence: None)
  Receive Date: 20120525
  Receipt Date: 20120426
  Transmission Date: 20120825
  Serious: No
  Sender: FDA-Public Use
  Company Number: US-ASTRAZENECA-2012SE27243

PATIENT
  Age: 65 Year
  Sex: Female
  Weight: 72.6 kg

DRUGS (4)
  1. OTHER MEDS [Concomitant]
  2. TOPIRAMATE [Concomitant]
     Indication: HEADACHE
  3. CRESTOR [Suspect]
     Indication: BLOOD CHOLESTEROL INCREASED
     Route: 048
  4. LEVOTHYROXINE SODIUM [Concomitant]
     Indication: THYROID DISORDER

REACTIONS (2)
  - ALOPECIA [None]
  - C-REACTIVE PROTEIN INCREASED [None]
